FAERS Safety Report 4308005-6 (Version None)
Quarter: 2004Q1

REPORT INFORMATION
  Report Type: 
  Country: None (occurrence: None)
  Receive Date: 20040301
  Receipt Date: 20030311
  Transmission Date: 20041129
  Serious: No
  Sender: FDA-Public Use
  Company Number: US-BRISTOL-MYERS SQUIBB COMPANY-12208039

PATIENT
  Age: 58 Year
  Sex: Female
  Weight: 75 kg

DRUGS (9)
  1. GLUCOPHAGE [Suspect]
     Indication: DIABETES MELLITUS
     Route: 048
  2. TAXOL [Suspect]
     Dates: start: 20020417, end: 20020626
  3. INDERAL [Concomitant]
  4. CELEXA [Concomitant]
  5. PRAVACHOL [Concomitant]
  6. ALTACE [Concomitant]
  7. ATIVAN [Concomitant]
  8. PROPYLTHIOURACIL [Concomitant]
  9. DYAZIDE [Concomitant]

REACTIONS (2)
  - BLOOD LACTIC ACID INCREASED [None]
  - GOUTY ARTHRITIS [None]
